FAERS Safety Report 5441227-X (Version None)
Quarter: 2007Q3

REPORT INFORMATION
  Report Type: 
  Country: None (occurrence: None)
  Receive Date: 20070901
  Receipt Date: 20070822
  Transmission Date: 20080115
  Serious: Yes (Other)
  Sender: FDA-Public Use
  Company Number: US-PFIZER INC-2007070663

PATIENT
  Sex: Female
  Weight: 62.727 kg

DRUGS (2)
  1. CHANTIX [Suspect]
     Indication: SMOKING CESSATION THERAPY
     Dates: start: 20070601, end: 20070819
  2. LOVASTATIN [Concomitant]
     Indication: BLOOD CHOLESTEROL INCREASED

REACTIONS (7)
  - ANGER [None]
  - EYE HAEMORRHAGE [None]
  - EYE INFECTION [None]
  - EYE PAIN [None]
  - EYE SWELLING [None]
  - HYPERSENSITIVITY [None]
  - NERVOUSNESS [None]
